FAERS Safety Report 19297446 (Version 1)
Quarter: 2021Q2

REPORT INFORMATION
  Report Type: Other
  Country: GB (occurrence: GB)
  Receive Date: 20210524
  Receipt Date: 20210524
  Transmission Date: 20210717
  Serious: Yes (Other)
  Sender: FDA-Public Use
  Company Number: GB-CELLTRION INC.-2021GB006813

PATIENT

DRUGS (6)
  1. WATER FOR INJECTIONS [Suspect]
     Active Substance: WATER
     Indication: MEDICATION DILUTION
     Dosage: (PHARMACEUTICAL DOSE FORM: 236)
     Route: 065
  2. REMSIMA [Suspect]
     Active Substance: INFLIXIMAB
     Indication: PRODUCT USED FOR UNKNOWN INDICATION
     Dosage: 375 MG
     Route: 065
  3. SODIUM CHLORIDE. [Suspect]
     Active Substance: SODIUM CHLORIDE
     Indication: MEDICATION DILUTION
     Dosage: (PHARMACEUTICAL DOSE FORM: 230)
     Route: 065
  4. REMSIMA [Suspect]
     Active Substance: INFLIXIMAB
     Dosage: 375 MG
     Route: 065
  5. WATER FOR INJECTIONS [Suspect]
     Active Substance: WATER
     Dosage: (PHARMACEUTICAL DOSE FORM: 236)
     Route: 065
  6. SODIUM CHLORIDE. [Suspect]
     Active Substance: SODIUM CHLORIDE
     Dosage: (PHARMACEUTICAL DOSE FORM: 230)
     Route: 065

REACTIONS (2)
  - Weight increased [Unknown]
  - Exposure during pregnancy [Unknown]
